FAERS Safety Report 8178463-8 (Version None)
Quarter: 2012Q1

REPORT INFORMATION
  Report Type: 
  Country: None (occurrence: None)
  Receive Date: 20120301
  Receipt Date: 20120229
  Transmission Date: 20120608
  Serious: No
  Sender: FDA-Public Use
  Company Number: US-PFIZER INC-2012054538

PATIENT
  Sex: Male
  Weight: 74.83 kg

DRUGS (2)
  1. PRISTIQ [Suspect]
     Indication: DEPRESSION
     Dosage: 50 MG, 1X/DAY
     Route: 048
     Dates: start: 20101001
  2. XANAX [Concomitant]
     Dosage: UNK

REACTIONS (5)
  - HEADACHE [None]
  - DIZZINESS [None]
  - VOMITING [None]
  - NAUSEA [None]
  - IRRITABILITY [None]
